FAERS Safety Report 23851287 (Version 2)
Quarter: 2024Q2

REPORT INFORMATION
  Report Type: Spontaneous
  Country: US (occurrence: US)
  Receive Date: 20240514
  Receipt Date: 20240515
  Transmission Date: 20240716
  Serious: No
  Sender: FDA-Public Use
  Company Number: US-BRISTOL-MYERS SQUIBB COMPANY-2024-074022

PATIENT
  Age: 54 Year
  Sex: Male

DRUGS (1)
  1. LENALIDOMIDE [Suspect]
     Active Substance: LENALIDOMIDE
     Indication: Extranodal marginal zone B-cell lymphoma (MALT type)
     Route: 048

REACTIONS (5)
  - Rash [Recovering/Resolving]
  - Nasopharyngitis [Unknown]
  - Chills [Recovering/Resolving]
  - Nausea [Recovering/Resolving]
  - Product dose omission issue [Unknown]
